FAERS Safety Report 8490387-5 (Version None)
Quarter: 2012Q3

REPORT INFORMATION
  Report Type: 
  Country: None (occurrence: None)
  Receive Date: 20120705
  Receipt Date: 20120702
  Transmission Date: 20120928
  Serious: Yes (Life-Threatening, Hospitalization, Other)
  Sender: FDA-Public Use
  Company Number: JP-PFIZER INC-2012110140

PATIENT
  Age: 81 Year
  Sex: Male
  Weight: 60.3 kg

DRUGS (17)
  1. DILTIAZEM HCL [Concomitant]
     Dosage: 100 MG, 1X/DAY
     Route: 048
  2. ISOSORBIDE DINITRATE [Concomitant]
     Dosage: 40 MG, 1X/DAY
     Route: 003
  3. LYRICA [Suspect]
     Indication: SCIATICA
     Dosage: 75 MG, 2X/DAY
     Route: 048
     Dates: start: 20120424, end: 20120428
  4. CARVEDILOL [Concomitant]
     Dosage: 2.5 MG, 1X/DAY
     Route: 048
  5. PLAVIX [Concomitant]
     Dosage: 75 MG, 1X/DAY
     Route: 048
  6. FEBURIC [Concomitant]
     Dosage: 20 MG, 1X/DAY
     Route: 048
  7. EPLERENONE [Suspect]
     Dosage: 50 MG, 1X/DAY
     Route: 048
  8. OLMESARTAN MEDOXOMIL [Suspect]
     Dosage: 40 MG, 1X/DAY
     Route: 048
  9. CLARITIN [Concomitant]
     Dosage: 10 MG, 1X/DAY
     Route: 048
  10. JUVELA [Concomitant]
     Dosage: 200 MG, 3X/DAY
     Route: 048
  11. DORNER [Concomitant]
     Dosage: 20 MG, 3X/DAY
     Route: 048
  12. OMEPRAZOLE [Concomitant]
     Dosage: 20 MG, 1X/DAY
     Route: 048
  13. SYMBICORT [Concomitant]
     Route: 055
  14. FERROUS FUMARATE [Concomitant]
     Dosage: 100 MG, 2X/DAY
     Route: 048
  15. RASILEZ [Suspect]
     Dosage: 150 MG, 1X/DAY
     Route: 048
  16. NITROL [Concomitant]
     Dosage: 20 MG, 2X/DAY
     Route: 048
  17. MAGMITT [Concomitant]
     Dosage: 500 MG, 3X/DAY
     Route: 048

REACTIONS (3)
  - BLOOD POTASSIUM INCREASED [None]
  - RENAL DISORDER [None]
  - ANURIA [None]
